FAERS Safety Report 5520114-2 (Version None)
Quarter: 2007Q4

REPORT INFORMATION
  Report Type: 
  Country: None (occurrence: None)
  Receive Date: 20071116
  Receipt Date: 20071108
  Transmission Date: 20080405
  Serious: Yes (Hospitalization)
  Sender: FDA-Public Use
  Company Number: US-ABBOTT-07P-163-0424665-00

PATIENT
  Sex: Male

DRUGS (5)
  1. BIAXIN [Suspect]
     Indication: NASOPHARYNGITIS
     Route: 048
     Dates: start: 20071010, end: 20071015
  2. GUAIFENESIN [Suspect]
     Indication: RHINORRHOEA
     Route: 048
     Dates: start: 20071010, end: 20071015
  3. CYANOCOBALAMIN [Concomitant]
     Indication: DRUG USE FOR UNKNOWN INDICATION
     Route: 065
  4. FOLIC ACID [Concomitant]
     Indication: DRUG USE FOR UNKNOWN INDICATION
     Route: 065
  5. POTASSIUM CHLORIDE [Concomitant]
     Indication: DRUG USE FOR UNKNOWN INDICATION
     Route: 065

REACTIONS (2)
  - ATRIAL FIBRILLATION [None]
  - FALL [None]
